FAERS Safety Report 4995165-7 (Version None)
Quarter: 2006Q2

REPORT INFORMATION
  Report Type: 
  Country: None (occurrence: None)
  Receive Date: 20060508
  Receipt Date: 20050117
  Transmission Date: 20061013
  Serious: Yes (Hospitalization, Other)
  Sender: FDA-Public Use
  Company Number: US-MERCK-0501USA02306

PATIENT
  Age: 76 Year
  Sex: Male
  Weight: 105 kg

DRUGS (10)
  1. VIOXX [Suspect]
     Indication: ARTHRITIS
     Route: 048
     Dates: start: 20020328, end: 20040907
  2. DIOVAN [Concomitant]
     Route: 048
  3. LOPRESSOR [Concomitant]
     Route: 048
  4. PROSCAR [Concomitant]
     Route: 048
  5. ZOCOR [Concomitant]
     Route: 048
  6. COUMADIN [Concomitant]
     Route: 048
  7. LANOXIN [Concomitant]
     Route: 048
  8. ASPIRIN [Concomitant]
     Route: 048
  9. OCUVITE [Concomitant]
     Route: 048
  10. ARICEPT [Concomitant]
     Route: 048

REACTIONS (21)
  - ACUTE PULMONARY OEDEMA [None]
  - AORTIC VALVE SCLEROSIS [None]
  - ARTERIOSCLEROSIS CORONARY ARTERY [None]
  - ATRIAL FIBRILLATION [None]
  - BACK DISORDER [None]
  - CARDIAC FAILURE CONGESTIVE [None]
  - CAROTID ARTERY DISEASE [None]
  - CAROTID ARTERY STENOSIS [None]
  - CATARACT [None]
  - CELLULITIS [None]
  - CEREBROVASCULAR ACCIDENT [None]
  - DILATATION ATRIAL [None]
  - HYPERTENSION [None]
  - MITRAL VALVE CALCIFICATION [None]
  - MYOCARDIAL INFARCTION [None]
  - PERIPHERAL VASCULAR DISORDER [None]
  - PSYCHOTIC DISORDER [None]
  - SKIN LESION [None]
  - SLEEP APNOEA SYNDROME [None]
  - VENTRICULAR HYPERTROPHY [None]
  - VENTRICULAR HYPOKINESIA [None]
